FAERS Safety Report 19900112 (Version 5)
Quarter: 2021Q4

REPORT INFORMATION
  Report Type: Spontaneous
  Country: GB (occurrence: GB)
  Receive Date: 20210930
  Receipt Date: 20211118
  Transmission Date: 20220303
  Serious: Yes (Death, Hospitalization)
  Sender: FDA-Public Use
  Company Number: GB-ROCHE-2680153

PATIENT
  Age: 55 Year
  Sex: Female

DRUGS (92)
  1. CAPECITABINE [Suspect]
     Active Substance: CAPECITABINE
     Indication: Breast cancer
     Route: 048
     Dates: start: 20201020
  2. CAPECITABINE [Suspect]
     Active Substance: CAPECITABINE
     Indication: Breast cancer metastatic
     Route: 048
     Dates: start: 20201025, end: 20201025
  3. CAPECITABINE [Suspect]
     Active Substance: CAPECITABINE
     Route: 048
     Dates: start: 20201020
  4. CAPECITABINE [Suspect]
     Active Substance: CAPECITABINE
  5. DOCETAXEL [Suspect]
     Active Substance: DOCETAXEL
     Indication: Breast cancer
     Route: 042
     Dates: start: 20170525, end: 20170525
  6. DOCETAXEL [Suspect]
     Active Substance: DOCETAXEL
     Indication: Depressed mood
     Dosage: 5 MILLIGRAM
     Route: 048
     Dates: start: 20190827, end: 20190919
  7. DOCETAXEL [Suspect]
     Active Substance: DOCETAXEL
     Indication: Breast cancer metastatic
  8. ERIBULIN MESYLATE [Suspect]
     Active Substance: ERIBULIN MESYLATE
     Indication: Breast cancer
     Route: 042
     Dates: start: 20200611, end: 20200820
  9. ERIBULIN MESYLATE [Suspect]
     Active Substance: ERIBULIN MESYLATE
     Indication: Breast cancer metastatic
  10. PACLITAXEL [Suspect]
     Active Substance: PACLITAXEL
     Indication: Breast cancer
     Route: 042
     Dates: start: 20170816, end: 20170906
  11. PACLITAXEL [Suspect]
     Active Substance: PACLITAXEL
     Indication: Breast cancer metastatic
     Route: 042
     Dates: start: 20170614, end: 20170614
  12. PACLITAXEL [Suspect]
     Active Substance: PACLITAXEL
     Route: 042
     Dates: start: 20170705, end: 20170726
  13. PACLITAXEL [Suspect]
     Active Substance: PACLITAXEL
     Route: 042
     Dates: start: 20170614, end: 20170614
  14. NERATINIB [Suspect]
     Active Substance: NERATINIB
     Indication: Breast cancer
     Route: 048
     Dates: start: 20200919, end: 20201104
  15. NERATINIB [Suspect]
     Active Substance: NERATINIB
     Indication: Breast cancer metastatic
  16. PERTUZUMAB [Suspect]
     Active Substance: PERTUZUMAB
     Indication: Breast cancer
     Route: 042
     Dates: start: 20170614, end: 20190327
  17. PERTUZUMAB [Suspect]
     Active Substance: PERTUZUMAB
     Indication: Breast cancer metastatic
     Route: 042
     Dates: start: 20170524, end: 20170524
  18. PERTUZUMAB [Suspect]
     Active Substance: PERTUZUMAB
     Route: 042
     Dates: start: 20170816, end: 20170906
  19. PERTUZUMAB [Suspect]
     Active Substance: PERTUZUMAB
     Route: 042
     Dates: start: 20170705, end: 20170726
  20. PERTUZUMAB [Suspect]
     Active Substance: PERTUZUMAB
  21. TRASTUZUMAB [Suspect]
     Active Substance: TRASTUZUMAB
     Indication: Breast cancer
     Route: 042
     Dates: start: 20180516, end: 20190327
  22. TRASTUZUMAB [Suspect]
     Active Substance: TRASTUZUMAB
     Indication: Breast cancer metastatic
     Route: 042
     Dates: start: 20170614, end: 20180425
  23. TRASTUZUMAB [Suspect]
     Active Substance: TRASTUZUMAB
     Route: 042
     Dates: start: 20170524, end: 20170524
  24. TRASTUZUMAB [Suspect]
     Active Substance: TRASTUZUMAB
     Route: 042
     Dates: start: 20170614, end: 20180425
  25. TRASTUZUMAB [Suspect]
     Active Substance: TRASTUZUMAB
     Route: 042
     Dates: start: 20180516, end: 20190327
  26. TRASTUZUMAB [Suspect]
     Active Substance: TRASTUZUMAB
     Route: 042
     Dates: start: 20170524, end: 20170524
  27. ADO-TRASTUZUMAB EMTANSINE [Suspect]
     Active Substance: ADO-TRASTUZUMAB EMTANSINE
     Indication: Breast cancer
     Route: 042
     Dates: start: 20190627, end: 20190718
  28. ADO-TRASTUZUMAB EMTANSINE [Suspect]
     Active Substance: ADO-TRASTUZUMAB EMTANSINE
     Indication: Breast cancer metastatic
     Route: 042
     Dates: start: 20190829, end: 20200326
  29. ADO-TRASTUZUMAB EMTANSINE [Suspect]
     Active Substance: ADO-TRASTUZUMAB EMTANSINE
     Route: 042
     Dates: start: 20190427, end: 20190606
  30. XELODA [Suspect]
     Active Substance: CAPECITABINE
     Indication: Breast cancer
     Route: 048
     Dates: start: 20201020
  31. CETIRIZINE [Concomitant]
     Active Substance: CETIRIZINE HYDROCHLORIDE
     Indication: Urticaria papular
     Route: 048
     Dates: start: 20190313, end: 2019
  32. CETIRIZINE [Concomitant]
     Active Substance: CETIRIZINE HYDROCHLORIDE
  33. CIPROFLOXACIN [Concomitant]
     Active Substance: CIPROFLOXACIN
     Indication: Abdominal pain upper
     Route: 065
     Dates: start: 20200707, end: 20200707
  34. CIPROFLOXACIN [Concomitant]
     Active Substance: CIPROFLOXACIN
     Indication: Cholecystitis acute
     Route: 065
     Dates: start: 20200909, end: 20200916
  35. ZOLEDRONIC ACID [Concomitant]
     Active Substance: ZOLEDRONIC ACID
     Indication: Product used for unknown indication
     Route: 042
     Dates: start: 20170525, end: 20201022
  36. ZOLEDRONIC ACID [Concomitant]
     Active Substance: ZOLEDRONIC ACID
  37. AMITRIPTYLINE [Concomitant]
     Active Substance: AMITRIPTYLINE
     Indication: Depressed mood
     Route: 048
     Dates: start: 20190827, end: 20190919
  38. AMITRIPTYLINE [Concomitant]
     Active Substance: AMITRIPTYLINE
  39. AZTREONAM [Concomitant]
     Active Substance: AZTREONAM
     Indication: Product contamination microbial
     Route: 042
     Dates: start: 20201028, end: 20201104
  40. CALCIUM\CHOLECALCIFEROL [Concomitant]
     Active Substance: CALCIUM\CHOLECALCIFEROL
     Indication: Product used for unknown indication
     Dosage: 0.33 DAY?3 DOSAGE FORMS
     Route: 048
     Dates: start: 20170525, end: 20210205
  41. CALCIUM\CHOLECALCIFEROL [Concomitant]
     Active Substance: CALCIUM\CHOLECALCIFEROL
  42. CEFUROXIME [Concomitant]
     Active Substance: CEFUROXIME
     Indication: Product contamination microbial
     Route: 048
     Dates: start: 20201028
  43. CEFUROXIME [Concomitant]
     Active Substance: CEFUROXIME
     Route: 048
     Dates: start: 20200925, end: 20201019
  44. CHLORHEXIDINE GLUCONATE [Concomitant]
     Active Substance: CHLORHEXIDINE GLUCONATE
     Indication: Product used for unknown indication
     Dosage: 10 MILLILITER, 0.25 PER DAY
     Route: 061
     Dates: start: 20170525, end: 2017
  45. CHLORHEXIDINE GLUCONATE [Concomitant]
     Active Substance: CHLORHEXIDINE GLUCONATE
  46. CHLORPHENIRAMINE [Concomitant]
     Active Substance: CHLORPHENIRAMINE
     Indication: Product used for unknown indication
     Dosage: 4 MILLIGRAM, 0.25 DAY
     Route: 048
     Dates: start: 20170526, end: 20170530
  47. CHLORPHENIRAMINE [Concomitant]
     Active Substance: CHLORPHENIRAMINE
  48. CLOBETASOL [Concomitant]
     Active Substance: CLOBETASOL
     Indication: Product used for unknown indication
     Route: 061
     Dates: start: 20170210, end: 201708
  49. CLOBETASOL [Concomitant]
     Active Substance: CLOBETASOL
     Route: 065
  50. CEFTRIAXONE [Concomitant]
     Active Substance: CEFTRIAXONE
     Indication: Product contamination microbial
     Route: 048
     Dates: start: 20200928, end: 20201012
  51. CEFTRIAXONE [Concomitant]
     Active Substance: CEFTRIAXONE
     Route: 042
  52. CEFTRIAXONE [Concomitant]
     Active Substance: CEFTRIAXONE
     Route: 042
  53. CLOBETASOL [Concomitant]
     Active Substance: CLOBETASOL
     Indication: Product used for unknown indication
  54. CLOBETASOL [Concomitant]
     Active Substance: CLOBETASOL
  55. DOMPERIDONE [Concomitant]
     Active Substance: DOMPERIDONE
     Indication: Product used for unknown indication
     Route: 048
     Dates: start: 20170523, end: 20170526
  56. DOMPERIDONE [Concomitant]
     Active Substance: DOMPERIDONE
  57. FUSIDIC ACID [Concomitant]
     Active Substance: FUSIDIC ACID
     Indication: Rhinitis
     Dosage: UNK
     Route: 065
     Dates: start: 201905, end: 201905
  58. FUSIDIC ACID [Concomitant]
     Active Substance: FUSIDIC ACID
  59. CYCLOSPORINE [Concomitant]
     Active Substance: CYCLOSPORINE
     Indication: Blepharitis
     Route: 047
     Dates: start: 201708, end: 2018
  60. CYCLOSPORINE [Concomitant]
     Active Substance: CYCLOSPORINE
  61. LANSOPRAZOLE [Concomitant]
     Active Substance: LANSOPRAZOLE
     Indication: Gastritis
     Route: 048
     Dates: start: 20190730, end: 202010
  62. LANSOPRAZOLE [Concomitant]
     Active Substance: LANSOPRAZOLE
  63. LOPERAMIDE [Concomitant]
     Active Substance: LOPERAMIDE
     Indication: Product used for unknown indication
     Route: 048
     Dates: start: 20170613, end: 20201113
  64. LOPERAMIDE [Concomitant]
     Active Substance: LOPERAMIDE
  65. METRONIDAZOLE [Concomitant]
     Active Substance: METRONIDAZOLE
     Indication: Duodenal ulcer
     Route: 065
     Dates: start: 20200909, end: 20200914
  66. METRONIDAZOLE [Concomitant]
     Active Substance: METRONIDAZOLE
     Indication: Cholecystitis acute
     Route: 048
     Dates: start: 20201116, end: 202011
  67. METRONIDAZOLE [Concomitant]
     Active Substance: METRONIDAZOLE
     Indication: Abdominal pain upper
     Route: 042
     Dates: start: 20200630, end: 20200709
  68. METRONIDAZOLE [Concomitant]
     Active Substance: METRONIDAZOLE
     Route: 042
     Dates: start: 20200925, end: 20200927
  69. ACETAMINOPHEN [Concomitant]
     Active Substance: ACETAMINOPHEN
     Indication: Product used for unknown indication
     Route: 048
     Dates: start: 20170525, end: 20210205
  70. ACETAMINOPHEN [Concomitant]
     Active Substance: ACETAMINOPHEN
  71. SORBINICATE [Concomitant]
     Active Substance: SORBINICATE
     Indication: Product used for unknown indication
     Dosage: 1 SPRAY
     Route: 060
     Dates: start: 20170526, end: 2017
  72. SANDO-K [Concomitant]
     Indication: Product used for unknown indication
     Route: 048
     Dates: start: 20170525, end: 20170529
  73. SANDO-K [Concomitant]
  74. TEICOPLANIN [Concomitant]
     Active Substance: TEICOPLANIN
     Indication: Biliary sepsis
     Route: 042
     Dates: start: 20200502, end: 20200515
  75. TEICOPLANIN [Concomitant]
     Active Substance: TEICOPLANIN
     Indication: Product contamination microbial
     Route: 042
     Dates: start: 20201028, end: 20201104
  76. TEICOPLANIN [Concomitant]
     Active Substance: TEICOPLANIN
     Route: 042
     Dates: start: 20200925, end: 20200925
  77. TINZAPARIN [Concomitant]
     Active Substance: TINZAPARIN
     Indication: Product used for unknown indication
     Route: 058
     Dates: start: 20170713, end: 20190723
  78. TINZAPARIN [Concomitant]
     Active Substance: TINZAPARIN
     Route: 058
     Dates: start: 20190916, end: 20191008
  79. TINZAPARIN [Concomitant]
     Active Substance: TINZAPARIN
  80. TRANEXAMIC ACID [Concomitant]
     Active Substance: TRANEXAMIC ACID
     Indication: Duodenal ulcer
     Route: 065
     Dates: start: 20190722, end: 201907
  81. TRANEXAMIC ACID [Concomitant]
     Active Substance: TRANEXAMIC ACID
     Indication: Coagulopathy
     Route: 048
     Dates: start: 20201112, end: 20201113
  82. TRANEXAMIC ACID [Concomitant]
     Active Substance: TRANEXAMIC ACID
     Dosage: UNCHECKED ONGOING 1 G (GRAM) TABLET PO (ORAL) TID (THREE
     Route: 048
     Dates: start: 20201111, end: 20201112
  83. VANCOMYCIN [Concomitant]
     Active Substance: VANCOMYCIN
     Indication: Clostridium difficile infection
     Route: 048
     Dates: start: 20201104, end: 20201113
  84. VANCOMYCIN [Concomitant]
     Active Substance: VANCOMYCIN
     Dosage: 125 MILLIGRAM, 0.25 DAY (CAPSULE PO (ORAL) QID (FOUR TIMES A DAY)
     Route: 048
     Dates: start: 20201113, end: 20201113
  85. VANCOMYCIN [Concomitant]
     Active Substance: VANCOMYCIN
     Route: 048
     Dates: start: 20201030, end: 20201104
  86. VANCOMYCIN [Concomitant]
     Active Substance: VANCOMYCIN
     Dosage: 125 MG, QID
     Route: 048
  87. NOT CLASSIFIED [Concomitant]
     Indication: Abdominal pain upper
     Route: 065
     Dates: start: 20200909, end: 20200916
  88. NOT CLASSIFIED [Concomitant]
     Indication: Cholecystitis acute
     Dates: start: 20200707, end: 202007
  89. NOT CLASSIFIED [Concomitant]
     Dosage: 0.25 DAY, 1 SPRAY
     Route: 060
     Dates: start: 20170526, end: 2017
  90. NOT CLASSIFIED [Concomitant]
     Dosage: 1 DOSAGE FORM, 0.5 DAY
     Route: 048
     Dates: start: 20170525, end: 20170529
  91. CALCIUM CARBONATE [Concomitant]
     Active Substance: CALCIUM CARBONATE
     Indication: Product used for unknown indication
     Route: 065
  92. CHOLECALCIFEROL [Concomitant]
     Active Substance: CHOLECALCIFEROL
     Indication: Product contamination microbial
     Dosage: 250 MILLIGRAM
     Route: 048
     Dates: start: 20200928, end: 20201012

REACTIONS (6)
  - Disease progression [Fatal]
  - Breast cancer [Unknown]
  - Pyrexia [Recovered/Resolved]
  - Abdominal pain [Not Recovered/Not Resolved]
  - Pyrexia [Not Recovered/Not Resolved]
  - Off label use [Unknown]

NARRATIVE: CASE EVENT DATE: 20200724
